FAERS Safety Report 19414043 (Version 1)
Quarter: 2021Q2

REPORT INFORMATION
  Report Type: Spontaneous
  Country: US (occurrence: US)
  Receive Date: 20210614
  Receipt Date: 20210614
  Transmission Date: 20210717
  Serious: Yes (Hospitalization, Other)
  Sender: FDA-Public Use
  Company Number: US-GLAXOSMITHKLINE-US2021122345

PATIENT
  Age: 93 Year
  Sex: Male
  Weight: 83.91 kg

DRUGS (1)
  1. BREO ELLIPTA [Suspect]
     Active Substance: FLUTICASONE FUROATE\VILANTEROL TRIFENATATE
     Indication: CHRONIC OBSTRUCTIVE PULMONARY DISEASE
     Dosage: 1 PUFF(S), QD (100?25MCG)
     Route: 055
     Dates: start: 2018

REACTIONS (2)
  - Gastric haemorrhage [Unknown]
  - Bowel movement irregularity [Recovering/Resolving]

NARRATIVE: CASE EVENT DATE: 20210526
